FAERS Safety Report 13674584 (Version 1)
Quarter: 2017Q2

REPORT INFORMATION
  Report Type: Spontaneous
  Country: US (occurrence: US)
  Receive Date: 20170621
  Receipt Date: 20170621
  Transmission Date: 20170830
  Serious: No
  Sender: FDA-Public Use
  Company Number: US-BAYER-2017-119866

PATIENT
  Sex: Female

DRUGS (17)
  1. NORCO [Concomitant]
     Active Substance: ACETAMINOPHEN\HYDROCODONE BITARTRATE
     Dosage: 1 DF, QID
     Route: 048
     Dates: start: 20170519
  2. LIDODERM [Concomitant]
     Active Substance: LIDOCAINE
     Dosage: 1 DF, QD
     Route: 062
     Dates: start: 20160729
  3. DEMADEX [Concomitant]
     Active Substance: TORSEMIDE
     Dosage: 2 DF, QD
     Route: 048
     Dates: start: 20170412
  4. BIOTIN [Concomitant]
     Active Substance: BIOTIN
     Dosage: UNK
     Route: 048
  5. MULTIVITAMIN [Concomitant]
     Active Substance: VITAMINS
     Dosage: 1 DF, QD
     Route: 048
  6. ALEVE [Suspect]
     Active Substance: NAPROXEN SODIUM
     Dosage: UNK
     Route: 065
  7. CALCIUM W/VITAMIN D [CALCIUM,ERGOCALCIFEROL] [Concomitant]
     Dosage: 1 DF, QD
     Route: 048
     Dates: start: 20101130
  8. FLONASE [Concomitant]
     Active Substance: FLUTICASONE PROPIONATE
     Dosage: 2 DF, QD
     Route: 045
     Dates: start: 20170405
  9. MICROGENICS PROBIOTIC 8 [Concomitant]
     Active Substance: LACTOBACILLUS ACIDOPHILUS
     Dosage: UNK UNK, QD
     Route: 048
  10. ADDERALL [Concomitant]
     Active Substance: AMPHETAMINE ASPARTATE\AMPHETAMINE SULFATE\DEXTROAMPHETAMINE SACCHARATE\DEXTROAMPHETAMINE SULFATE
     Dosage: 30 MG, QD
     Route: 048
     Dates: start: 20170509
  11. COLACE [Concomitant]
     Active Substance: DOCUSATE SODIUM
     Dosage: 2 DF, BID
     Route: 048
     Dates: start: 20160803
  12. PROMETHAZINE HCL W/PHENYLEPH.HCL/CODE.PHOS. [Concomitant]
     Dosage: 1 DF, QID, PRN
     Route: 048
  13. PROVENTIL [Concomitant]
     Active Substance: ALBUTEROL
     Indication: WHEEZING
     Dosage: 3 ML, QID, PRN
     Route: 055
     Dates: start: 20170131
  14. LIPITOR [Concomitant]
     Active Substance: ATORVASTATIN CALCIUM
     Dosage: 0.5 DF, QD
     Route: 048
     Dates: start: 20160809
  15. KLONOPIN [Concomitant]
     Active Substance: CLONAZEPAM
     Dosage: 1 MG, BID
     Route: 048
     Dates: start: 20170419
  16. LYRICA [Concomitant]
     Active Substance: PREGABALIN
     Indication: FIBROMYALGIA
     Dosage: 100 MG, BID
     Route: 048
     Dates: start: 20170217
  17. MAXALT [Concomitant]
     Active Substance: RIZATRIPTAN BENZOATE
     Dosage: 10 MG, PRN
     Route: 048

REACTIONS (1)
  - Drug hypersensitivity [Unknown]
